FAERS Safety Report 5724652-9 (Version None)
Quarter: 2008Q2

REPORT INFORMATION
  Report Type: 
  Country: None (occurrence: None)
  Receive Date: 20080501
  Receipt Date: 20080423
  Transmission Date: 20081010
  Serious: Yes (Hospitalization, Other)
  Sender: FDA-Public Use
  Company Number: US-WYE-H03766208

PATIENT
  Age: 52 Year
  Sex: Male

DRUGS (6)
  1. EFFEXOR XR [Suspect]
     Indication: DEPRESSION
     Route: 048
     Dates: start: 20080401, end: 20080401
  2. EFFEXOR XR [Suspect]
     Dosage: 150 MG, FREQUENCYN OT SPECIFIED
     Route: 048
     Dates: start: 20080401, end: 20080420
  3. EFFEXOR XR [Suspect]
     Dosage: ^BEGAN TO TAPER OFF^
     Route: 048
     Dates: start: 20080421
  4. ATENOLOL [Concomitant]
     Indication: HYPERTENSION
     Dosage: UNKNOWN
  5. ZETIA [Concomitant]
     Indication: HYPERCHOLESTEROLAEMIA
     Dosage: UNKNOWN
     Dates: start: 20071001
  6. XANAX [Suspect]
     Dosage: ^TOOK SIX TABLETS OF XANAX 25 MG^
     Dates: start: 20080423, end: 20080423

REACTIONS (8)
  - CONDITION AGGRAVATED [None]
  - DEPRESSION [None]
  - DRUG WITHDRAWAL SYNDROME [None]
  - INSOMNIA [None]
  - INTENTIONAL OVERDOSE [None]
  - SUICIDAL IDEATION [None]
  - SUICIDE ATTEMPT [None]
  - UNEVALUABLE EVENT [None]
